FAERS Safety Report 9405229 (Version 1)
Quarter: 2013Q3

REPORT INFORMATION
  Report Type: Spontaneous
  Country: US (occurrence: US)
  Receive Date: 20130717
  Receipt Date: 20130717
  Transmission Date: 20140515
  Serious: Yes (Other)
  Sender: FDA-Public Use
  Company Number: PHHY2013US073580

PATIENT
  Age: 31 Year
  Sex: Male

DRUGS (7)
  1. VANCOMYCIN [Suspect]
     Indication: SKIN ULCER
     Dosage: 2 G, UNK
     Route: 042
  2. CEFEPIME [Concomitant]
     Indication: SKIN ULCER
     Dosage: 2 G, UNK
     Route: 042
  3. METRONIDAZOLE [Concomitant]
     Dosage: 500 MG, UNK
     Route: 042
  4. PIPERACILLIN/TAZOBACTAM [Concomitant]
  5. METFORMIN [Concomitant]
     Indication: DIABETES MELLITUS
  6. NOVOLIN 70/30 [Concomitant]
     Indication: DIABETES MELLITUS
  7. LISINOPRIL [Concomitant]
     Indication: HYPERTENSION
     Dosage: 10 MG, QD

REACTIONS (5)
  - Nephropathy toxic [Unknown]
  - Renal tubular necrosis [Unknown]
  - Proteinuria [Unknown]
  - Drug level increased [Unknown]
  - Haematuria [Unknown]
